FAERS Safety Report 23190104 (Version 1)
Quarter: 2023Q4

REPORT INFORMATION
  Report Type: Spontaneous
  Country: IT (occurrence: IT)
  Receive Date: 20231116
  Receipt Date: 20231116
  Transmission Date: 20240110
  Serious: Yes (Hospitalization)
  Sender: FDA-Public Use
  Company Number: None

PATIENT
  Age: 75 Year
  Sex: Female
  Weight: 48 kg

DRUGS (10)
  1. PACLITAXEL [Suspect]
     Active Substance: PACLITAXEL
     Indication: Lung neoplasm malignant
     Dosage: 1ST CYCLE/1ST DAY PACLITAXEL TEVA* 50ML 6MG/ML; ADMINISTERED DOSE: 230 MG I.V. IN 180 MINUTES; WEEKL
     Route: 042
     Dates: start: 20231010
  2. CARBOPLATIN [Suspect]
     Active Substance: CARBOPLATIN
     Indication: Lung neoplasm malignant
     Dosage: 1ST CYCLE/1ST DAY CARBOPLATIN HIKMA* 1FL 60ML (EACH FLL CONTAINS 600MG/60ML); ADMINISTERED DOSE: 400
     Route: 042
     Dates: start: 20231010
  3. DEXAMETHASONE [Concomitant]
     Active Substance: DEXAMETHASONE
     Indication: Steroid therapy
     Dosage: DEXAMETASONE (PA) ADMINISTERED 8 MG - 1 TIME PER WEEK FOR CHEMOTHERAPY: WEEKLY CBDCA+PACLITAXEL PROT
     Dates: start: 20231010
  4. DEXAMETHASONE [Concomitant]
     Active Substance: DEXAMETHASONE
     Indication: Chemotherapy side effect prophylaxis
  5. LERCANIDIPINE HYDROCHLORIDE [Concomitant]
     Active Substance: LERCANIDIPINE HYDROCHLORIDE
     Indication: Hypertension
     Dosage: .5 DOSAGE FORMS DAILY; LERCADIP*28CPR RIV 10MG - 1/2 TABLETS/DAY AT 11:00
     Dates: start: 2023
  6. METOCLOPRAMIDE [Concomitant]
     Active Substance: METOCLOPRAMIDE
     Indication: Nausea
     Dosage: METOCLOPRAMIDE (PA) ADMINISTERED 10 MG - ONCE A WEEK FOR CHEMOTHERAPY: WEEKLY CBDCA+PACLITAXEL PROTO
     Dates: start: 20231010
  7. ROSUASA [Concomitant]
     Indication: Hypertension
     Dosage: 1 DOSAGE FORMS DAILY; ROSUASA*28CPS 5MG+100MG - 1 CP/DAY AFTER LUNCH
     Dates: start: 2023
  8. ROSUASA [Concomitant]
     Indication: Dyslipidaemia
  9. GRANISETRON [Concomitant]
     Active Substance: GRANISETRON
     Indication: Vomiting
     Dosage: GRANISETRON (PA) ADMINISTERED 3 MG - ONCE A WEEK FOR CHEMOTHERAPY: WEEKLY CBDCA+PACLITAXEL PROTOCOL
     Dates: start: 20231010
  10. GRANISETRON [Concomitant]
     Active Substance: GRANISETRON
     Indication: Chemotherapy side effect prophylaxis

REACTIONS (6)
  - Chest pain [Recovered/Resolved]
  - Asthenia [Recovered/Resolved]
  - Dyspnoea [Recovered/Resolved]
  - Rash [Recovering/Resolving]
  - Asthenia [Recovered/Resolved]
  - Oxygen saturation decreased [Recovered/Resolved]

NARRATIVE: CASE EVENT DATE: 20231010
